FAERS Safety Report 20314719 (Version 1)
Quarter: 2022Q1

REPORT INFORMATION
  Report Type: Spontaneous
  Country: IT (occurrence: IT)
  Receive Date: 20220110
  Receipt Date: 20220110
  Transmission Date: 20220423
  Serious: Yes (Other)
  Sender: FDA-Public Use
  Company Number: IT-TAKEDA-2022TEU000117

PATIENT
  Age: 69 Year
  Sex: Male

DRUGS (1)
  1. ENANTONE LP [Suspect]
     Active Substance: LEUPROLIDE ACETATE
     Indication: Prostate cancer
     Dosage: 11.25 MILLIGRAM
     Route: 065

REACTIONS (3)
  - Prostate cancer recurrent [Unknown]
  - Metastases to bone [Unknown]
  - Metastases to lymph nodes [Unknown]

NARRATIVE: CASE EVENT DATE: 20210601
